FAERS Safety Report 24794901 (Version 1)
Quarter: 2024Q4

REPORT INFORMATION
  Report Type: Spontaneous
  Country: US (occurrence: US)
  Receive Date: 20241231
  Receipt Date: 20241231
  Transmission Date: 20250115
  Serious: No
  Sender: PFIZER
  Company Number: US-PFIZER INC-202400329732

PATIENT
  Age: 77 Year

DRUGS (1)
  1. PREMARIN [Suspect]
     Active Substance: ESTROGENS, CONJUGATED
     Dosage: 0.5 G FOR 2 WEEKS, AT NIGHT

REACTIONS (3)
  - Inflammation [Unknown]
  - Pruritus [Unknown]
  - Off label use [Unknown]
